FAERS Safety Report 8864130 (Version 1)
Quarter: 2012Q4

REPORT INFORMATION
  Report Type: 
  Country: US (occurrence: US)
  Receive Date: 20121024
  Receipt Date: 20121024
  Transmission Date: 20130627
  Serious: No
  Sender: FDA-Public Use
  Company Number: US-AMGEN-USASP2011065761

PATIENT
  Age: 54 Year
  Sex: Female
  Weight: 74.38 kg

DRUGS (9)
  1. ENBREL [Suspect]
     Indication: PRODUCT USED FOR UNKNOWN INDICATION
     Dosage: 50 mg, qwk
     Route: 058
  2. FOLIC ACID [Concomitant]
     Dosage: 1 mg, UNK
  3. SERTRALINE [Concomitant]
     Dosage: 25 mg, UNK
  4. PREDNISONE [Concomitant]
     Dosage: 1 mg, UNK
  5. NEXIUM                             /01479302/ [Concomitant]
     Dosage: 40 mg, UNK
  6. METHOTREXATE [Concomitant]
     Dosage: 2.5 mg, UNK
  7. METOPROLOL [Concomitant]
     Dosage: 25 mg, UNK
  8. OXYCODONE [Concomitant]
     Dosage: 10 mg, UNK
  9. PROAIR HFA [Concomitant]

REACTIONS (3)
  - Muscle spasms [Unknown]
  - Epistaxis [Unknown]
  - Nasal disorder [Recovered/Resolved]
